FAERS Safety Report 7704993-6 (Version None)
Quarter: 2011Q3

REPORT INFORMATION
  Report Type: 
  Country: None (occurrence: None)
  Receive Date: 20110823
  Receipt Date: 20110808
  Transmission Date: 20111222
  Serious: Yes (Hospitalization)
  Sender: FDA-Public Use
  Company Number: ES-ARROW GEN-2011-13305

PATIENT
  Age: 39 Year
  Sex: Male

DRUGS (3)
  1. TACROLIMUS [Suspect]
     Indication: LIVER TRANSPLANT
     Dosage: UNK
  2. MYCOPHENOLATE MEFETIL [Suspect]
     Indication: LIVER TRANSPLANT
     Dosage: UNK
  3. ROSUVASTATIN [Suspect]
     Indication: DYSLIPIDAEMIA
     Dosage: UNK

REACTIONS (5)
  - RENAL IMPAIRMENT [None]
  - RHABDOMYOLYSIS [None]
  - ACIDOSIS [None]
  - DRUG INTERACTION [None]
  - DYSLIPIDAEMIA [None]
